FAERS Safety Report 8257606-1 (Version None)
Quarter: 2012Q2

REPORT INFORMATION
  Report Type: 
  Country: None (occurrence: None)
  Receive Date: 20120403
  Receipt Date: 20120330
  Transmission Date: 20120825
  Serious: Yes (Other)
  Sender: FDA-Public Use
  Company Number: US-PFIZER INC-2012034555

PATIENT
  Sex: Female
  Weight: 61.2 kg

DRUGS (2)
  1. LO/OVRAL-28 [Suspect]
     Indication: CONTRACEPTION
     Dosage: (28 TABLETS) ONE TABLET DAILY
     Dates: start: 20111201
  2. LO/OVRAL-28 [Suspect]
     Indication: HORMONE THERAPY
     Dosage: (28 TABLETS) ONE TABLET DAILY

REACTIONS (10)
  - CHEST PAIN [None]
  - ABDOMINAL PAIN [None]
  - ABDOMINAL DISTENSION [None]
  - AMENORRHOEA [None]
  - NAUSEA [None]
  - FLATULENCE [None]
  - PRODUCT QUALITY ISSUE [None]
  - WEIGHT INCREASED [None]
  - CONSTIPATION [None]
  - ACNE [None]
